FAERS Safety Report 10786324 (Version 1)
Quarter: 2015Q1

REPORT INFORMATION
  Report Type: Spontaneous
  Country: CL (occurrence: CL)
  Receive Date: 20150211
  Receipt Date: 20150211
  Transmission Date: 20150721
  Serious: Yes (Other)
  Sender: FDA-Public Use
  Company Number: CL-WATSON-2015-02190

PATIENT
  Age: 9 Year
  Sex: Female

DRUGS (1)
  1. TRELSTAR [Suspect]
     Active Substance: TRIPTORELIN PAMOATE
     Indication: PRECOCIOUS PUBERTY
     Dosage: 1 DF, SINGLE
     Route: 030
     Dates: start: 20150106, end: 20150106

REACTIONS (2)
  - Urticaria [Unknown]
  - Angioedema [Unknown]

NARRATIVE: CASE EVENT DATE: 20150112
